FAERS Safety Report 6595286-1 (Version None)
Quarter: 2010Q1

REPORT INFORMATION
  Report Type: 
  Country: None (occurrence: None)
  Receive Date: 20100212
  Receipt Date: 20100204
  Transmission Date: 20100710
  Serious: Yes (Hospitalization)
  Sender: FDA-Public Use
  Company Number: 003344

PATIENT
  Sex: Female

DRUGS (2)
  1. XYZAL [Suspect]
  2. HORMONES NOS [Concomitant]

REACTIONS (1)
  - CEREBRAL THROMBOSIS [None]
